FAERS Safety Report 13168169 (Version 1)
Quarter: 2017Q1

REPORT INFORMATION
  Report Type: Spontaneous
  Country: GB (occurrence: GB)
  Receive Date: 20170131
  Receipt Date: 20170131
  Transmission Date: 20170428
  Serious: Yes (Life-Threatening, Disabling, Other)
  Sender: FDA-Public Use
  Company Number: GB-TEVA-732348ACC

PATIENT
  Age: 47 Year
  Sex: Male
  Weight: 78.01 kg

DRUGS (3)
  1. MICROCRYSTALLINE CELLULOSE [Suspect]
     Active Substance: CELLULOSE, MICROCRYSTALLINE
     Route: 048
     Dates: start: 20100401, end: 20170101
  2. ACTAVIS UK METFORMIN [Suspect]
     Active Substance: METFORMIN HYDROCHLORIDE
     Indication: TYPE 2 DIABETES MELLITUS
     Route: 048
     Dates: start: 20060401, end: 20170101
  3. GLICLAZIDE [Concomitant]
     Active Substance: GLICLAZIDE

REACTIONS (9)
  - Reaction to drug excipients [Recovering/Resolving]
  - Drug intolerance [None]
  - Anxiety [Unknown]
  - Drug ineffective [Unknown]
  - Fatigue [Recovering/Resolving]
  - Malaise [Unknown]
  - Headache [None]
  - Somnolence [Recovering/Resolving]
  - Abdominal discomfort [Unknown]

NARRATIVE: CASE EVENT DATE: 20060401
